FAERS Safety Report 26084469 (Version 2)
Quarter: 2025Q4

REPORT INFORMATION
  Report Type: Spontaneous
  Country: EU (occurrence: EU)
  Receive Date: 20251124
  Receipt Date: 20251222
  Transmission Date: 20260118
  Serious: Yes (Hospitalization)
  Sender: NOVO NORDISK
  Company Number: EU-NOVOPROD-1567327

PATIENT
  Age: 19 Year
  Sex: Female
  Weight: 73 kg

DRUGS (1)
  1. ALHEMO [Suspect]
     Active Substance: CONCIZUMAB-MTCI
     Indication: Glanzmann^s disease
     Dosage: 0.2 MG/KG, QD
     Dates: start: 20240701

REACTIONS (3)
  - Ovarian cyst [Recovered/Resolved]
  - Vaginal haemorrhage [Recovered/Resolved]
  - Off label use [Unknown]

NARRATIVE: CASE EVENT DATE: 20240701
